FAERS Safety Report 13393621 (Version 1)
Quarter: 2017Q1

REPORT INFORMATION
  Report Type: Report from Study
  Country: US (occurrence: US)
  Receive Date: 20170331
  Receipt Date: 20170331
  Transmission Date: 20170429
  Serious: Yes (Life-Threatening, Hospitalization, Other)
  Sender: FDA-Public Use
  Company Number: US-PFIZER INC-2017137680

PATIENT
  Age: 42 Year
  Sex: Male
  Weight: 62 kg

DRUGS (3)
  1. CYTARABINE. [Suspect]
     Active Substance: CYTARABINE
     Indication: ACUTE MYELOID LEUKAEMIA
     Dosage: 170 MG, ONCE DAILY FOR 7 DAYS
     Route: 042
     Dates: start: 20170208, end: 20170214
  2. IDAMYCIN [Suspect]
     Active Substance: IDARUBICIN HYDROCHLORIDE
     Indication: ACUTE MYELOID LEUKAEMIA
     Dosage: 20 MG, ONCE DAILY FOR 3 DAYS
     Route: 042
     Dates: start: 20170208, end: 20170210
  3. ASP2215 [Suspect]
     Active Substance: GILTERITINIB
     Indication: ACUTE MYELOID LEUKAEMIA
     Dosage: 120 MG, ONCE DAILY FOR 14 DAYS
     Route: 048
     Dates: start: 20170211, end: 20170221

REACTIONS (6)
  - Mucosal inflammation [Not Recovered/Not Resolved]
  - Febrile neutropenia [Recovered/Resolved]
  - Small intestinal obstruction [Recovering/Resolving]
  - Cardiac arrest [Recovered/Resolved]
  - Pneumonia aspiration [Not Recovered/Not Resolved]
  - Pyrexia [Recovered/Resolved]

NARRATIVE: CASE EVENT DATE: 20170213
